FAERS Safety Report 8763752 (Version 1)
Quarter: 2012Q4

REPORT INFORMATION
  Report Type: Spontaneous
  Country: US (occurrence: None)
  Receive Date: 20120831
  Receipt Date: 20120831
  Transmission Date: 20130627
  Serious: Yes (Other)
  Sender: FDA-Public Use
  Company Number: None

PATIENT
  Age: 44 Year
  Sex: Female
  Weight: 61.24 kg

DRUGS (2)
  1. CORTIZONE 10 [Suspect]
     Dosage: As needed  no more than 3-4x
     Route: 061
     Dates: start: 20120823, end: 20120825
  2. ANTIBIOTIC [Concomitant]

REACTIONS (6)
  - Rash [None]
  - Condition aggravated [None]
  - Urinary tract infection [None]
  - Impaired work ability [None]
  - Reaction to drug excipients [None]
  - Product label issue [None]
